FAERS Safety Report 15485974 (Version 1)
Quarter: 2018Q4

REPORT INFORMATION
  Report Type: Spontaneous
  Country: FR (occurrence: FR)
  Receive Date: 20181011
  Receipt Date: 20181011
  Transmission Date: 20190205
  Serious: Yes (Death)
  Sender: FDA-Public Use
  Company Number: PHHY2018FR121217

PATIENT
  Age: 43 Year
  Sex: Male
  Weight: 134 kg

DRUGS (1)
  1. AMOXICILLIN. [Suspect]
     Active Substance: AMOXICILLIN
     Indication: INFLUENZA
     Dosage: 3 G, QD
     Route: 048
     Dates: start: 20180906

REACTIONS (3)
  - Cardiac arrest [Fatal]
  - Encephalopathy [Fatal]
  - Anaphylactic shock [Fatal]

NARRATIVE: CASE EVENT DATE: 20180906
